FAERS Safety Report 7900922-0 (Version None)
Quarter: 2011Q4

REPORT INFORMATION
  Report Type: 
  Country: None (occurrence: None)
  Receive Date: 20111108
  Receipt Date: 20111026
  Transmission Date: 20120403
  Serious: Yes (Hospitalization)
  Sender: FDA-Public Use
  Company Number: US-ELI_LILLY_AND_COMPANY-US201110007296

PATIENT
  Age: 16 Year
  Sex: Female

DRUGS (2)
  1. VALPROIC ACID [Concomitant]
  2. ZYPREXA [Suspect]
     Indication: SCHIZOAFFECTIVE DISORDER
     Dosage: 20 MG, QD
     Route: 048

REACTIONS (1)
  - DELUSION [None]
